FAERS Safety Report 11432256 (Version 1)
Quarter: 2015Q3

REPORT INFORMATION
  Report Type: Report from Study
  Country: NL (occurrence: NL)
  Receive Date: 20150828
  Receipt Date: 20150828
  Transmission Date: 20151125
  Serious: Yes (Death, Other)
  Sender: FDA-Public Use
  Company Number: NL-AMGEN-NLDSL2015086050

PATIENT
  Age: 56 Year
  Sex: Female

DRUGS (5)
  1. PACLITAXEL. [Concomitant]
     Active Substance: PACLITAXEL
     Dosage: UNK
  2. XGEVA [Suspect]
     Active Substance: DENOSUMAB
     Indication: BREAST CANCER METASTATIC
     Dosage: 120 MG, UNK
     Route: 058
     Dates: start: 20141205, end: 20150807
  3. OXYCODON [Concomitant]
     Active Substance: OXYCODONE
     Dosage: 5 MG, UNK
  4. PARACETAMOL [Concomitant]
     Active Substance: ACETAMINOPHEN
     Dosage: 500 MG, UNK
  5. CALCIUM [Concomitant]
     Active Substance: CALCIUM
     Dosage: 500 MG, UNK

REACTIONS (15)
  - Metastases to liver [Unknown]
  - Death [Fatal]
  - Dyspnoea [Unknown]
  - Pneumonia [Unknown]
  - Breast cancer metastatic [Unknown]
  - Wound [Unknown]
  - Hyponatraemia [Unknown]
  - Hypercalcaemia [Unknown]
  - Anaemia macrocytic [Unknown]
  - Abscess drainage [Unknown]
  - Infection [Unknown]
  - Sepsis [Unknown]
  - Osteomyelitis [Unknown]
  - Oedema [Unknown]
  - Varicose vein operation [Unknown]

NARRATIVE: CASE EVENT DATE: 20150320
